FAERS Safety Report 6075590-6 (Version None)
Quarter: 2009Q1

REPORT INFORMATION
  Report Type: 
  Country: None (occurrence: None)
  Receive Date: 20090212
  Receipt Date: 20090205
  Transmission Date: 20090719
  Serious: Yes (Hospitalization)
  Sender: FDA-Public Use
  Company Number: US-ELI_LILLY_AND_COMPANY-US200902001269

PATIENT
  Sex: Female

DRUGS (2)
  1. HUMALOG [Suspect]
     Route: 058
  2. HUMALOG [Suspect]
     Route: 058

REACTIONS (9)
  - BLOOD GLUCOSE DECREASED [None]
  - BLOOD GLUCOSE INCREASED [None]
  - DIABETIC KETOACIDOSIS [None]
  - INFUSION SITE CELLULITIS [None]
  - INFUSION SITE ERYTHEMA [None]
  - INFUSION SITE PAIN [None]
  - INFUSION SITE WARMTH [None]
  - STOMACH MASS [None]
  - VISUAL ACUITY REDUCED [None]
